FAERS Safety Report 18890531 (Version 2)
Quarter: 2021Q1

REPORT INFORMATION
  Report Type: Spontaneous
  Country: US (occurrence: US)
  Receive Date: 20210214
  Receipt Date: 20210304
  Transmission Date: 20210420
  Serious: Yes (Hospitalization)
  Sender: FDA-Public Use
  Company Number: US-UNICHEM PHARMACEUTICALS (USA) INC-UCM202102-000113

PATIENT
  Age: 56 Year
  Sex: Female
  Weight: 71.66 kg

DRUGS (3)
  1. MELOXICAM. [Suspect]
     Active Substance: MELOXICAM
     Dates: start: 201811
  2. GABAPENTIN. [Suspect]
     Active Substance: GABAPENTIN
     Indication: PRODUCT USED FOR UNKNOWN INDICATION
     Dosage: UNKNOWN
  3. MELOXICAM. [Suspect]
     Active Substance: MELOXICAM
     Indication: ARTHRITIS
     Dates: start: 20190312

REACTIONS (24)
  - Duodenal ulcer [Unknown]
  - Dyspnoea [Unknown]
  - Gastrooesophageal reflux disease [Unknown]
  - Hypersensitivity [Unknown]
  - Abdominal distension [Unknown]
  - Micturition disorder [Unknown]
  - Coronary artery disease [Unknown]
  - Malaise [Unknown]
  - Chest pain [Unknown]
  - Influenza [Unknown]
  - Feeling abnormal [Unknown]
  - Embolism [Unknown]
  - Peptic ulcer [Unknown]
  - Chest discomfort [Unknown]
  - Hypotension [Unknown]
  - Coeliac disease [Unknown]
  - Arterial thrombosis [Unknown]
  - Overdose [Unknown]
  - Myocardial infarction [Unknown]
  - Chronic obstructive pulmonary disease [Unknown]
  - Decreased appetite [Unknown]
  - Eating disorder [Unknown]
  - Gastrointestinal disorder [Unknown]
  - Fatigue [Unknown]

NARRATIVE: CASE EVENT DATE: 20190312
